FAERS Safety Report 18573265 (Version 1)
Quarter: 2020Q4

REPORT INFORMATION
  Report Type: Spontaneous
  Country: MY (occurrence: MY)
  Receive Date: 20201203
  Receipt Date: 20201203
  Transmission Date: 20210114
  Serious: Yes (Other)
  Sender: FDA-Public Use
  Company Number: MY-AMGEN-MYSSP2020195877

PATIENT
  Age: 49 Year
  Sex: Female

DRUGS (14)
  1. PASURTA [Suspect]
     Active Substance: ERENUMAB
     Dosage: 70 MILLIGRAM, Q4WK  (11TH DOSE)
     Route: 058
     Dates: start: 20201005
  2. PASURTA [Suspect]
     Active Substance: ERENUMAB
     Dosage: 70 MILLIGRAM, Q4WK(3RD DOSE)
     Route: 058
  3. PASURTA [Suspect]
     Active Substance: ERENUMAB
     Dosage: 70 MILLIGRAM, Q4WK (7TH DOSE)
     Route: 058
  4. PASURTA [Suspect]
     Active Substance: ERENUMAB
     Dosage: 70 MILLIGRAM, Q4WK (10TH DOSE)
     Route: 058
  5. IMIGRAN [SUMATRIPTAN] [Concomitant]
     Active Substance: SUMATRIPTAN
     Indication: HEADACHE
     Dosage: UNK
     Route: 065
  6. PASURTA [Suspect]
     Active Substance: ERENUMAB
     Indication: MIGRAINE
     Dosage: 70 MILLIGRAM, Q4WK (1ST DOSE)
     Route: 058
     Dates: start: 20191216
  7. PASURTA [Suspect]
     Active Substance: ERENUMAB
     Dosage: 70 MILLIGRAM, Q4WK (6TH DOSE)
     Route: 058
  8. PASURTA [Suspect]
     Active Substance: ERENUMAB
     Dosage: 70 MILLIGRAM, Q4WK (9TH DOSE)
     Route: 058
  9. PASURTA [Suspect]
     Active Substance: ERENUMAB
     Dosage: 70 MILLIGRAM, Q4WK (8TH DOSE)
     Route: 058
  10. PONSTAN [Concomitant]
     Active Substance: MEFENAMIC ACID
     Indication: HEADACHE
     Dosage: UNK
     Route: 065
  11. PASURTA [Suspect]
     Active Substance: ERENUMAB
     Dosage: 70 MILLIGRAM, Q4WK (4TH DOSE)
     Route: 058
  12. PASURTA [Suspect]
     Active Substance: ERENUMAB
     Dosage: 70 MILLIGRAM, Q4WK (2ND DOSE)
     Route: 058
  13. PASURTA [Suspect]
     Active Substance: ERENUMAB
     Dosage: 70 MILLIGRAM, Q4WK (5TH DOSE)
     Route: 058
  14. PASURTA [Suspect]
     Active Substance: ERENUMAB
     Dosage: 70 MILLIGRAM, Q4WK (12TH DOSE)
     Route: 058
     Dates: start: 20201102

REACTIONS (3)
  - Musculoskeletal stiffness [Recovering/Resolving]
  - Musculoskeletal discomfort [Recovering/Resolving]
  - Arthralgia [Recovering/Resolving]

NARRATIVE: CASE EVENT DATE: 20191216
